FAERS Safety Report 6070108-6 (Version None)
Quarter: 2009Q1

REPORT INFORMATION
  Report Type: 
  Country: None (occurrence: None)
  Receive Date: 20090204
  Receipt Date: 20090119
  Transmission Date: 20090719
  Serious: Yes (Other)
  Sender: FDA-Public Use
  Company Number: 8041878

PATIENT
  Age: 12 Year
  Sex: Female

DRUGS (2)
  1. PREDNISOLONE [Suspect]
  2. CYCLOSPORINE [Suspect]

REACTIONS (2)
  - DISEASE RECURRENCE [None]
  - PYODERMA GANGRENOSUM [None]
